FAERS Safety Report 24425847 (Version 1)
Quarter: 2024Q4

REPORT INFORMATION
  Report Type: Spontaneous
  Country: FR (occurrence: FR)
  Receive Date: 20241011
  Receipt Date: 20241011
  Transmission Date: 20250114
  Serious: Yes (Death, Life-Threatening)
  Sender: AUROBINDO
  Company Number: FR-AFSSAPS-MA2024001339

PATIENT
  Age: 67 Year
  Sex: Male

DRUGS (2)
  1. MEROPENEM [Suspect]
     Active Substance: MEROPENEM
     Indication: Pneumonia
     Dosage: UNK
     Route: 042
     Dates: start: 20210425, end: 20210524
  2. CEFEPIME [Suspect]
     Active Substance: CEFEPIME HYDROCHLORIDE
     Indication: Pneumonia
     Dosage: UNK
     Route: 042
     Dates: start: 20210413, end: 20210424

REACTIONS (2)
  - Drug level increased [Fatal]
  - Akathisia [Not Recovered/Not Resolved]

NARRATIVE: CASE EVENT DATE: 20210421
